FAERS Safety Report 13075046 (Version 2)
Quarter: 2017Q1

REPORT INFORMATION
  Report Type: Report from Study
  Country: US (occurrence: US)
  Receive Date: 20161230
  Receipt Date: 20170103
  Transmission Date: 20170428
  Serious: Yes (Hospitalization)
  Sender: FDA-Public Use
  Company Number: US-ROCHE-1873913

PATIENT
  Sex: Female
  Weight: 112 kg

DRUGS (1)
  1. XOLAIR [Suspect]
     Active Substance: OMALIZUMAB
     Indication: ASTHMA
     Dosage: 18/OCT/2016, 15/NOV/2016, 21/DEC/2016
     Route: 058

REACTIONS (2)
  - Respiratory disorder [Unknown]
  - Nasopharyngitis [Unknown]
